FAERS Safety Report 25905064 (Version 1)
Quarter: 2025Q4

REPORT INFORMATION
  Report Type: Report from Study
  Country: CN (occurrence: CN)
  Receive Date: 20251010
  Receipt Date: 20251010
  Transmission Date: 20260118
  Serious: Yes (Death)
  Sender: ROCHE
  Company Number: CN-ROCHE-10000407349

PATIENT
  Age: 81 Year
  Sex: Male

DRUGS (1)
  1. POLIVY [Suspect]
     Active Substance: POLATUZUMAB VEDOTIN-PIIQ
     Indication: Diffuse large B-cell lymphoma
     Dosage: STRENGTH: 30 MG/VIAL
     Route: 042
     Dates: start: 20250820, end: 20250910

REACTIONS (2)
  - Pneumonia [Fatal]
  - Respiratory failure [Fatal]
